FAERS Safety Report 20736066 (Version 4)
Quarter: 2022Q4

REPORT INFORMATION
  Report Type: Other
  Country: CA (occurrence: None)
  Receive Date: 20220421
  Receipt Date: 20221230
  Transmission Date: 20230112
  Serious: No
  Sender: FDA-Public Use
  Company Number: CA-ROCHE-3081096

PATIENT
  Age: 56 Year
  Sex: Female

DRUGS (5)
  1. OCREVUS [Suspect]
     Active Substance: OCRELIZUMAB
     Indication: Relapsing-remitting multiple sclerosis
     Dosage: 300 MG AT DAY 0 AND 14, THEN 600 MG EVERY 6 MONTH
     Route: 042
     Dates: start: 20200804
  2. NAPROXEN [Concomitant]
     Active Substance: NAPROXEN
  3. BACLOFEN [Concomitant]
     Active Substance: BACLOFEN
  4. MODAFINIL [Concomitant]
     Active Substance: MODAFINIL
  5. BUPROPION [Concomitant]
     Active Substance: BUPROPION

REACTIONS (2)
  - COVID-19 [Not Recovered/Not Resolved]
  - Snoring [Not Recovered/Not Resolved]

NARRATIVE: CASE EVENT DATE: 20220403
